FAERS Safety Report 5614212-2 (Version None)
Quarter: 2008Q1

REPORT INFORMATION
  Report Type: 
  Country: None (occurrence: None)
  Receive Date: 20080111
  Receipt Date: 20071026
  Transmission Date: 20080703
  Serious: Yes (Other)
  Sender: FDA-Public Use
  Company Number: HQWYE659730JUL04

PATIENT
  Age: 52 Year
  Sex: Female

DRUGS (6)
  1. PREMPRO [Suspect]
     Indication: HORMONE REPLACEMENT THERAPY
  2. CYCRIN [Suspect]
  3. DEPO-PROVERA SUSPENSION/INJ [Suspect]
  4. ESTRACE [Suspect]
  5. ESTRADIOL [Suspect]
  6. METRONIDAZOLE [Suspect]

REACTIONS (1)
  - BREAST CANCER [None]
